FAERS Safety Report 6267331-4 (Version None)
Quarter: 2009Q3

REPORT INFORMATION
  Report Type: 
  Country: None (occurrence: None)
  Receive Date: 20090714
  Receipt Date: 20090706
  Transmission Date: 20100115
  Serious: Yes (Disabling, Other)
  Sender: FDA-Public Use
  Company Number: A0768211A

PATIENT
  Age: 9 Year
  Sex: Female
  Weight: 26 kg

DRUGS (3)
  1. LAMICTAL [Suspect]
     Route: 048
     Dates: start: 20081101, end: 20090101
  2. CLONIDINE [Suspect]
     Indication: MOOD SWINGS
     Dosage: .1MG AT NIGHT
     Dates: start: 20081230
  3. ZOLOFT [Suspect]
     Indication: ANXIETY
     Dosage: 37.5MG PER DAY
     Dates: start: 20081215

REACTIONS (9)
  - ANXIETY [None]
  - CONTUSION [None]
  - CRYING [None]
  - EMOTIONAL DISORDER [None]
  - EPILEPSY [None]
  - HALLUCINATION [None]
  - HALLUCINATION, AUDITORY [None]
  - PARANOIA [None]
  - WEIGHT DECREASED [None]
